FAERS Safety Report 5657425-6 (Version None)
Quarter: 2008Q1

REPORT INFORMATION
  Report Type: 
  Country: None (occurrence: None)
  Receive Date: 20080219
  Receipt Date: 20071129
  Transmission Date: 20080703
  Serious: No
  Sender: FDA-Public Use
  Company Number: WAES 0711USA06562

PATIENT
  Sex: Female

DRUGS (1)
  1. JANUVIA [Suspect]
     Indication: TYPE 2 DIABETES MELLITUS
     Dosage: 100 MG/DAILY/PO
     Route: 048
     Dates: start: 20071115

REACTIONS (6)
  - DEPRESSION [None]
  - FOOD CRAVING [None]
  - HUNGER [None]
  - INCREASED APPETITE [None]
  - IRRITABILITY [None]
  - RASH [None]
